FAERS Safety Report 15347926 (Version 2)
Quarter: 2018Q4

REPORT INFORMATION
  Report Type: Report from Study
  Country: CA (occurrence: CA)
  Receive Date: 20180904
  Receipt Date: 20180918
  Transmission Date: 20190204
  Serious: Yes (Hospitalization)
  Sender: FDA-Public Use
  Company Number: CA-TAIHO ONCOLOGY  INC-EU-2018-01333

PATIENT
  Sex: Male
  Weight: 105 kg

DRUGS (1)
  1. LONSURF [Suspect]
     Active Substance: TIPIRACIL HYDROCHLORIDE\TRIFLURIDINE
     Indication: COLORECTAL CANCER METASTATIC
     Dosage: CURRENT CYCLE 1 FINISHED ON 10/AUG/2018
     Route: 048
     Dates: start: 20180730

REACTIONS (2)
  - Disease progression [Unknown]
  - Sensory disturbance [Recovered/Resolved]

NARRATIVE: CASE EVENT DATE: 2018
